FAERS Safety Report 6547241-5 (Version None)
Quarter: 2010Q1

REPORT INFORMATION
  Report Type: 
  Country: None (occurrence: None)
  Receive Date: 20100122
  Receipt Date: 20100115
  Transmission Date: 20100710
  Serious: Yes (Hospitalization)
  Sender: FDA-Public Use
  Company Number: DE-TEVA-221111ISR

PATIENT
  Sex: Female
  Weight: 50 kg

DRUGS (1)
  1. GEMCITABINE [Suspect]
     Indication: LUNG ADENOCARCINOMA
     Route: 042
     Dates: start: 20090929, end: 20091215

REACTIONS (2)
  - DYSPNOEA [None]
  - PNEUMONIA [None]
